FAERS Safety Report 17049486 (Version 1)
Quarter: 2019Q4

REPORT INFORMATION
  Report Type: Spontaneous
  Country: US (occurrence: US)
  Receive Date: 20191119
  Receipt Date: 20191119
  Transmission Date: 20200122
  Serious: Yes (Death)
  Sender: FDA-Public Use
  Company Number: None

PATIENT
  Age: 79 Year
  Sex: Male

DRUGS (1)
  1. WARFARIN [Suspect]
     Active Substance: WARFARIN

REACTIONS (7)
  - Oxygen saturation decreased [None]
  - Pulmonary oedema [None]
  - Respiratory distress [None]
  - Pyrexia [None]
  - Neurological decompensation [None]
  - Emotional distress [None]
  - Speech disorder [None]

NARRATIVE: CASE EVENT DATE: 20190913
